FAERS Safety Report 4824228-1 (Version None)
Quarter: 2005Q4

REPORT INFORMATION
  Report Type: 
  Country: None (occurrence: None)
  Receive Date: 20051108
  Receipt Date: 20051025
  Transmission Date: 20060501
  Serious: Yes (Other)
  Sender: FDA-Public Use
  Company Number: 8012986

PATIENT

DRUGS (3)
  1. KEPPRA [Suspect]
     Dosage: PO
     Route: 048
  2. CHEMOTHERAPY [Suspect]
  3. UNSPECIFIED MEDICATIONS [Suspect]

REACTIONS (1)
  - THROMBOCYTOPENIA [None]
